FAERS Safety Report 8167930-9 (Version None)
Quarter: 2012Q1

REPORT INFORMATION
  Report Type: 
  Country: None (occurrence: None)
  Receive Date: 20120227
  Receipt Date: 20120217
  Transmission Date: 20120608
  Serious: Yes (Hospitalization)
  Sender: FDA-Public Use
  Company Number: US-GLAXOSMITHKLINE-A0945526A

PATIENT
  Sex: Female

DRUGS (1)
  1. VOTRIENT [Suspect]
     Indication: MALIGNANT SOFT TISSUE NEOPLASM
     Dosage: 200MG TWICE PER DAY
     Route: 048

REACTIONS (3)
  - SURGERY [None]
  - BLOOD DISORDER [None]
  - OFF LABEL USE [None]
